FAERS Safety Report 4714636-1 (Version None)
Quarter: 2005Q3

REPORT INFORMATION
  Report Type: 
  Country: None (occurrence: None)
  Receive Date: 20050714
  Receipt Date: 20050714
  Transmission Date: 20060218
  Serious: Yes (Other)
  Sender: FDA-Public Use
  Company Number: None

PATIENT
  Sex: Female
  Weight: 72.5755 kg

DRUGS (1)
  1. ALTACE [Suspect]
     Indication: HYPERTENSION
     Dosage: .25 CAPSULES TWICE A DAY
     Dates: start: 20040901, end: 20050731

REACTIONS (2)
  - RESPIRATORY DEPTH DECREASED [None]
  - RESPIRATORY DISORDER [None]
